FAERS Safety Report 8860932 (Version 1)
Quarter: 2012Q4

REPORT INFORMATION
  Report Type: 
  Country: US (occurrence: US)
  Receive Date: 20121025
  Receipt Date: 20121025
  Transmission Date: 20130627
  Serious: No
  Sender: FDA-Public Use
  Company Number: US-AMGEN-USASP2012015194

PATIENT
  Age: 48 Year
  Sex: Female
  Weight: 54.88 kg

DRUGS (7)
  1. ENBREL [Suspect]
     Indication: PRODUCT USED FOR UNKNOWN INDICATION
     Dosage: 50 mg, qwk
  2. CYCLOBENZAPRINE [Concomitant]
     Dosage: 10 mg, UNK
     Route: 048
  3. LEXAPRO [Concomitant]
     Dosage: 5 mg, UNK
     Route: 048
  4. RESTASIS [Concomitant]
     Dosage: 0.05 %, UNK
  5. LORTAB                             /00607101/ [Concomitant]
     Dosage: UNK
     Route: 048
  6. CENTRUM                            /00554501/ [Concomitant]
     Dosage: UNK
     Route: 048
  7. XANAX [Concomitant]
     Dosage: 0.5 mg, UNK

REACTIONS (1)
  - Haemoglobin [Unknown]
